FAERS Safety Report 14467629 (Version 1)
Quarter: 2018Q1

REPORT INFORMATION
  Report Type: Spontaneous
  Country: US (occurrence: US)
  Receive Date: 20180131
  Receipt Date: 20180131
  Transmission Date: 20180509
  Serious: No
  Sender: FDA-Public Use
  Company Number: US-009507513-1708USA013739

PATIENT
  Sex: Male

DRUGS (1)
  1. CUBICIN RF [Suspect]
     Active Substance: DAPTOMYCIN
     Dosage: 500/10 MG/ML, UNK

REACTIONS (2)
  - Liver function test increased [Unknown]
  - Body temperature increased [Unknown]
